FAERS Safety Report 4555578-4 (Version None)
Quarter: 2005Q1

REPORT INFORMATION
  Report Type: 
  Country: None (occurrence: None)
  Receive Date: 20050118
  Receipt Date: 20050118
  Transmission Date: 20050727
  Serious: Yes (Other)
  Sender: FDA-Public Use
  Company Number: None

PATIENT
  Age: 73 Year
  Sex: Male
  Weight: 72.1219 kg

DRUGS (2)
  1. DETROL LA [Suspect]
     Indication: POLLAKIURIA
     Dosage: 4 MG Q HS
     Dates: start: 20040707, end: 20040710
  2. DILANTIN [Suspect]
     Indication: CONVULSION
     Dosage: 160 MG Q AM

REACTIONS (4)
  - DRY MOUTH [None]
  - PALPITATIONS [None]
  - TINNITUS [None]
  - VISION BLURRED [None]
